FAERS Safety Report 7002472-5 (Version None)
Quarter: 2010Q3

REPORT INFORMATION
  Report Type: 
  Country: None (occurrence: None)
  Receive Date: 20100920
  Receipt Date: 20070801
  Transmission Date: 20110219
  Serious: No
  Sender: FDA-Public Use
  Company Number: US-ASTRAZENECA-2007UW02101

PATIENT
  Age: 49 Year
  Sex: Female
  Weight: 86.2 kg

DRUGS (21)
  1. SEROQUEL [Suspect]
     Indication: DEPRESSION
     Dosage: 75-100 MG
     Route: 048
     Dates: start: 20011221, end: 20030307
  2. SEROQUEL [Suspect]
     Indication: SLEEP DISORDER
     Dosage: 75-100 MG
     Route: 048
     Dates: start: 20011221, end: 20030307
  3. SEROQUEL [Suspect]
     Indication: ANXIETY
     Dosage: 75-100 MG
     Route: 048
     Dates: start: 20011221, end: 20030307
  4. SEROQUEL [Suspect]
     Indication: INSOMNIA
     Dosage: 75-100 MG
     Route: 048
     Dates: start: 20011221, end: 20030307
  5. SEROQUEL [Suspect]
     Route: 048
     Dates: start: 20011201, end: 20050701
  6. SEROQUEL [Suspect]
     Route: 048
     Dates: start: 20011201, end: 20050701
  7. SEROQUEL [Suspect]
     Route: 048
     Dates: start: 20011201, end: 20050701
  8. SEROQUEL [Suspect]
     Route: 048
     Dates: start: 20011201, end: 20050701
  9. SEROQUEL [Suspect]
     Dosage: AS REQUIRED
     Route: 048
     Dates: start: 20011201, end: 20050701
  10. SEROQUEL [Suspect]
     Dosage: AS REQUIRED
     Route: 048
     Dates: start: 20011201, end: 20050701
  11. SEROQUEL [Suspect]
     Dosage: AS REQUIRED
     Route: 048
     Dates: start: 20011201, end: 20050701
  12. SEROQUEL [Suspect]
     Dosage: AS REQUIRED
     Route: 048
     Dates: start: 20011201, end: 20050701
  13. SEROQUEL [Suspect]
     Route: 048
     Dates: start: 20040115
  14. SEROQUEL [Suspect]
     Route: 048
     Dates: start: 20040115
  15. SEROQUEL [Suspect]
     Route: 048
     Dates: start: 20040115
  16. SEROQUEL [Suspect]
     Route: 048
     Dates: start: 20040115
  17. CLOZARIL [Concomitant]
     Dates: start: 19990101
  18. RISPERDAL [Concomitant]
     Dates: start: 20010101
  19. ZYPREXA [Concomitant]
     Dates: start: 19990101
  20. KLONOPIN [Concomitant]
     Dosage: 1-2 MG
     Route: 048
     Dates: start: 20000504
  21. PREMPRO [Concomitant]
     Dosage: 0.3/1.5-0.625/2.5 MG
     Route: 048
     Dates: start: 20020712

REACTIONS (8)
  - CYSTOCELE [None]
  - DIABETES MELLITUS INADEQUATE CONTROL [None]
  - DIZZINESS [None]
  - FUNGAL INFECTION [None]
  - HYPERLIPIDAEMIA [None]
  - HYPERTENSION [None]
  - TYPE 2 DIABETES MELLITUS [None]
  - VULVAL DISORDER [None]
